FAERS Safety Report 9007243 (Version 3)
Quarter: 2013Q2

REPORT INFORMATION
  Report Type: Report from Study
  Country: JP (occurrence: JP)
  Receive Date: 20130110
  Receipt Date: 20130415
  Transmission Date: 20140414
  Serious: Yes (Hospitalization, Other)
  Sender: FDA-Public Use
  Company Number: JP-ROCHE-1176132

PATIENT
  Age: 83 Year
  Sex: Female
  Weight: 37.05 kg

DRUGS (22)
  1. OMALIZUMAB [Suspect]
     Indication: ASTHMA
     Route: 058
     Dates: start: 20100928
  2. OMALIZUMAB [Suspect]
     Route: 065
     Dates: start: 20101124
  3. OMALIZUMAB [Suspect]
     Route: 065
     Dates: start: 20101221
  4. OMALIZUMAB [Suspect]
     Route: 065
     Dates: start: 20110215
  5. OMALIZUMAB [Suspect]
     Route: 065
     Dates: start: 20110531
  6. OMALIZUMAB [Suspect]
     Route: 065
     Dates: start: 20110916
  7. OMALIZUMAB [Suspect]
     Route: 065
     Dates: start: 20110412
  8. NITRODERM TTS [Concomitant]
     Route: 065
     Dates: start: 20110116
  9. ALVESCO [Concomitant]
     Route: 065
     Dates: start: 20110119
  10. SINGULAIR [Concomitant]
     Route: 065
     Dates: start: 20110119
  11. KETAS [Concomitant]
     Route: 065
     Dates: start: 20110119
  12. PREDONINE [Concomitant]
     Route: 065
     Dates: start: 20110119
  13. BAYASPIRIN [Concomitant]
     Route: 065
     Dates: start: 20110119
  14. HALFDIGOXIN KY [Concomitant]
     Route: 065
     Dates: start: 20110119
  15. HERBESSER [Concomitant]
     Route: 065
     Dates: start: 20110119
  16. SIGMART [Concomitant]
     Route: 065
     Dates: start: 20110119
  17. MUCOSOLVAN [Concomitant]
     Route: 065
     Dates: start: 20110119
  18. BIOFERMIN [Concomitant]
     Route: 065
     Dates: start: 20110119
  19. PARIET [Concomitant]
     Route: 065
     Dates: start: 20110119
  20. KAYEXALATE [Concomitant]
     Route: 065
     Dates: start: 20110119
  21. AZULENE [Concomitant]
     Route: 065
     Dates: start: 20101130, end: 20101202
  22. AZULENE [Concomitant]
     Route: 065
     Dates: start: 20110119

REACTIONS (10)
  - Asthma [Recovered/Resolved]
  - Chondrocalcinosis pyrophosphate [Recovering/Resolving]
  - Gastroenteritis [Recovered/Resolved]
  - Pneumonia [Recovered/Resolved]
  - Cellulitis [Unknown]
  - Local swelling [Unknown]
  - Erythema [Unknown]
  - Aphagia [Unknown]
  - White blood cell count increased [Unknown]
  - C-reactive protein increased [Unknown]
